FAERS Safety Report 22005586 (Version 1)
Quarter: 2023Q1

REPORT INFORMATION
  Report Type: Spontaneous
  Country: RU (occurrence: RU)
  Receive Date: 20230217
  Receipt Date: 20230217
  Transmission Date: 20230418
  Serious: Yes (Other)
  Sender: FDA-Public Use
  Company Number: RU-BAYER-2023P007973

PATIENT
  Age: 58 Year
  Sex: Female

DRUGS (1)
  1. ANGELIQ [Suspect]
     Active Substance: DROSPIRENONE\ESTRADIOL
     Indication: Menopausal symptoms
     Dosage: UNK
     Route: 048

REACTIONS (6)
  - Cardiac contractility decreased [None]
  - Extrasystoles [None]
  - Dyspnoea exertional [None]
  - Palpitations [None]
  - Cardiac discomfort [None]
  - Anxiety [None]

NARRATIVE: CASE EVENT DATE: 20221001
